FAERS Safety Report 4759887-5 (Version None)
Quarter: 2005Q3

REPORT INFORMATION
  Report Type: 
  Country: None (occurrence: None)
  Receive Date: 20050902
  Receipt Date: 20050727
  Transmission Date: 20060218
  Serious: Yes (Life-Threatening, Hospitalization)
  Sender: FDA-Public Use
  Company Number: DE-BOEHRINGER INGELHEIM PHARMACEUTICALS, INC.-2005-DE-02918DE

PATIENT
  Sex: Female
  Weight: 85 kg

DRUGS (3)
  1. MICARDIS [Suspect]
     Indication: HYPERTENSION
  2. FENOFIBRAT HEXAL [Suspect]
     Route: 048
  3. ASPIRIN [Concomitant]

REACTIONS (2)
  - HAEMOLYSIS [None]
  - HAEMOLYTIC ANAEMIA [None]
